FAERS Safety Report 5421170-2 (Version None)
Quarter: 2007Q3

REPORT INFORMATION
  Report Type: 
  Country: None (occurrence: None)
  Receive Date: 20070719
  Receipt Date: 20070406
  Transmission Date: 20080115
  Serious: Yes (Other)
  Sender: FDA-Public Use
  Company Number: HQWYE976109APR07

PATIENT
  Age: 43 Year
  Sex: Female
  Weight: 68.1 kg

DRUGS (2)
  1. ADVIL PM [Suspect]
     Indication: INSOMNIA
     Dosage: 1 CAPLET ONE TIME, ORAL
     Route: 048
     Dates: start: 20070201, end: 20070201
  2. ESTRADIOL [Concomitant]

REACTIONS (2)
  - PALPITATIONS [None]
  - TREMOR [None]
